FAERS Safety Report 4824498-X (Version None)
Quarter: 2005Q4

REPORT INFORMATION
  Report Type: 
  Country: None (occurrence: None)
  Receive Date: 20051110
  Receipt Date: 20051107
  Transmission Date: 20060501
  Serious: Yes (Hospitalization)
  Sender: FDA-Public Use
  Company Number: AU-BOEHRINGER INGELHEIM PHARMACEUTICALS, INC.-2005-BP-19273AU

PATIENT
  Sex: Male

DRUGS (13)
  1. MICARDIS [Suspect]
     Indication: HYPERTENSION
     Route: 048
     Dates: end: 20050502
  2. SERTRALINE HCL [Suspect]
     Indication: DEPRESSION
     Route: 048
     Dates: start: 20050427, end: 20050502
  3. OROXINE [Concomitant]
  4. PROPRANOLOL [Concomitant]
  5. CALTRATE (CALCIUM CARBONATE) [Concomitant]
  6. ASPIRIN [Concomitant]
  7. ACTONEL [Concomitant]
  8. RANITIDINE [Concomitant]
  9. VAGIFEM [Concomitant]
  10. OTRIVIN [Concomitant]
  11. PANAMAX [Concomitant]
  12. ACETAMINOPHEN W/ CODEINE [Concomitant]
  13. XALATAN [Concomitant]

REACTIONS (3)
  - CONFUSIONAL STATE [None]
  - HYPERKALAEMIA [None]
  - HYPONATRAEMIA [None]
